FAERS Safety Report 7297233-6 (Version None)
Quarter: 2010Q4

REPORT INFORMATION
  Report Type: 
  Country: None (occurrence: None)
  Receive Date: 20101227
  Receipt Date: 20100119
  Transmission Date: 20110411
  Serious: Yes (Life-Threatening, Other)
  Sender: FDA-Public Use
  Company Number: WAES 1001USA01842

PATIENT
  Age: 46 Year
  Sex: Female

DRUGS (1)
  1. ZETIA [Suspect]
     Indication: BLOOD CHOLESTEROL
     Dosage: 10 MG/DAILY/PO
     Route: 048
     Dates: start: 20070101, end: 20070101

REACTIONS (1)
  - HYPERSENSITIVITY [None]
